FAERS Safety Report 17750893 (Version 1)
Quarter: 2020Q2

REPORT INFORMATION
  Report Type: Spontaneous
  Country: US (occurrence: US)
  Receive Date: 20200506
  Receipt Date: 20200506
  Transmission Date: 20200714
  Serious: No
  Sender: FDA-Public Use
  Company Number: US-HIKMA PHARMACEUTICALS USA INC.-US-H14001-20-00607

PATIENT
  Age: 65 Year
  Sex: Female

DRUGS (1)
  1. BOSENTAN HIKMA [Suspect]
     Active Substance: BOSENTAN
     Indication: PRODUCT USED FOR UNKNOWN INDICATION
     Route: 048
     Dates: start: 2018

REACTIONS (3)
  - Dyspnoea [Unknown]
  - Product dose omission [Unknown]
  - Exercise tolerance decreased [Unknown]

NARRATIVE: CASE EVENT DATE: 20200127
